FAERS Safety Report 5595783-1 (Version None)
Quarter: 2008Q1

REPORT INFORMATION
  Report Type: 
  Country: None (occurrence: None)
  Receive Date: 20080118
  Receipt Date: 20080115
  Transmission Date: 20080703
  Serious: Yes (Hospitalization)
  Sender: FDA-Public Use
  Company Number: B0503246A

PATIENT
  Age: 65 Year
  Sex: Male
  Weight: 104 kg

DRUGS (9)
  1. PAROXETINE [Suspect]
     Indication: DEPRESSION
     Route: 048
     Dates: end: 20071026
  2. MIRTAZAPINE [Concomitant]
     Dosage: 45MG PER DAY
     Route: 048
  3. DIAZEPAM [Concomitant]
     Dosage: 15MG PER DAY
     Route: 048
  4. FUROSEMIDE [Concomitant]
     Dosage: 40MG PER DAY
     Route: 048
  5. OMEPRAZOLE [Concomitant]
     Dosage: 20MG PER DAY
     Route: 048
  6. PERINDOPRIL [Concomitant]
     Dosage: 2MG PER DAY
     Route: 048
  7. ATORVASTATIN [Concomitant]
     Dosage: 10MG PER DAY
     Route: 048
  8. WARFARIN SODIUM [Concomitant]
  9. ZOPICLONE [Concomitant]
     Dosage: 7.5MG PER DAY

REACTIONS (2)
  - PSYCHOTIC DISORDER [None]
  - WITHDRAWAL SYNDROME [None]
